FAERS Safety Report 7784564-6 (Version None)
Quarter: 2011Q3

REPORT INFORMATION
  Report Type: 
  Country: None (occurrence: None)
  Receive Date: 20110926
  Receipt Date: 20110920
  Transmission Date: 20111222
  Serious: Yes (Hospitalization)
  Sender: FDA-Public Use
  Company Number: IMP_05435_2011

PATIENT
  Sex: Male
  Weight: 93 kg

DRUGS (3)
  1. BACLOFEN [Suspect]
     Indication: PRODUCT USED FOR UNKNOWN INDICATION
     Dosage: (1850 MG, ONCE) ; (2500 MG, ONCE)
  2. MIRTAZAPINE [Suspect]
     Indication: PRODUCT USED FOR UNKNOWN INDICATION
     Dosage: (230 MG, ONCE)
  3. ESCITALOPRAM [Suspect]
     Indication: PRODUCT USED FOR UNKNOWN INDICATION
     Dosage: (160 MG, ONCE)

REACTIONS (12)
  - SINUS BRADYCARDIA [None]
  - CONTINUOUS HAEMODIAFILTRATION [None]
  - COMA SCALE ABNORMAL [None]
  - CONVULSION [None]
  - LOSS OF CONSCIOUSNESS [None]
  - MULTIPLE DRUG OVERDOSE [None]
  - SNORING [None]
  - RESPIRATORY ACIDOSIS [None]
  - MIOSIS [None]
  - RESPIRATORY DEPRESSION [None]
  - HYPOTONIA [None]
  - TOXICITY TO VARIOUS AGENTS [None]
